FAERS Safety Report 10328116 (Version 2)
Quarter: 2014Q3

REPORT INFORMATION
  Report Type: Report from Study
  Country: MX (occurrence: MX)
  Receive Date: 20140721
  Receipt Date: 20140721
  Transmission Date: 20150326
  Serious: Yes (Other)
  Sender: FDA-Public Use
  Company Number: PHHY2013MX081231

PATIENT
  Age: 65 Year
  Sex: Female

DRUGS (10)
  1. RESOTRANS [Concomitant]
     Indication: IRRITABLE BOWEL SYNDROME
     Dosage: 2 DF, DAILY
     Route: 048
     Dates: start: 201305, end: 201306
  2. NEXIUM [Concomitant]
     Active Substance: ESOMEPRAZOLE MAGNESIUM
     Indication: GASTROOESOPHAGEAL REFLUX DISEASE
     Dosage: 40 MG, BID
     Dates: start: 2003
  3. AXIS [Concomitant]
     Indication: ISCHAEMIC HEART DISEASE PROPHYLAXIS
     Dosage: 1 DF, DAILY
     Route: 048
  4. ZELMAC [Suspect]
     Active Substance: TEGASEROD
     Indication: IRRITABLE BOWEL SYNDROME
     Dosage: 6 MG, TWO TIMES PER DAY
     Route: 048
     Dates: start: 2002, end: 201305
  5. ASPIRIN. [Concomitant]
     Active Substance: ASPIRIN
     Indication: ISCHAEMIC HEART DISEASE PROPHYLAXIS
     Dosage: 80 MG, DAILY
     Route: 048
  6. ELANTAN [Concomitant]
     Active Substance: ISOSORBIDE MONONITRATE
     Indication: ANGINA PECTORIS
     Dosage: 20 MG, BID
     Route: 048
  7. ZELMAC [Suspect]
     Active Substance: TEGASEROD
     Dosage: 6 MG, THREE TIMES PER DAY
     Route: 048
     Dates: start: 201307
  8. DABEX [Concomitant]
     Indication: HYPOGLYCAEMIA
     Dosage: 1 DF, DAILY
     Route: 048
  9. ANGIOTROFIN [Concomitant]
     Active Substance: DILTIAZEM HYDROCHLORIDE
     Indication: ANGINA PECTORIS
     Dosage: 60 MG, BID
  10. RANISEN [Concomitant]
     Indication: GASTROOESOPHAGEAL REFLUX DISEASE
     Dosage: 300 MG, BID
     Route: 048
     Dates: start: 201304

REACTIONS (3)
  - Abdominal pain upper [Recovered/Resolved]
  - Ileus paralytic [Recovered/Resolved]
  - Regurgitation [Unknown]

NARRATIVE: CASE EVENT DATE: 201305
